FAERS Safety Report 23178984 (Version 4)
Quarter: 2024Q1

REPORT INFORMATION
  Report Type: Spontaneous
  Country: US (occurrence: US)
  Receive Date: 20231113
  Receipt Date: 20240227
  Transmission Date: 20240410
  Serious: Yes (Hospitalization, Other)
  Sender: FDA-Public Use
  Company Number: US-PFIZER INC-202300361505

PATIENT
  Age: 84 Year
  Sex: Female
  Weight: 68.027 kg

DRUGS (6)
  1. VYNDAMAX [Suspect]
     Active Substance: TAFAMIDIS
     Indication: Amyloidosis
     Dosage: 61 MG, 1X/DAY
     Route: 048
  2. VYNDAMAX [Suspect]
     Active Substance: TAFAMIDIS
     Indication: Cardiac failure
  3. ENTRESTO [Concomitant]
     Active Substance: SACUBITRIL\VALSARTAN
     Indication: Cardiac disorder
     Dosage: 49 MG/51 MG
     Dates: start: 2023
  4. FARXIGA [Concomitant]
     Active Substance: DAPAGLIFLOZIN PROPANEDIOL
     Dosage: 10 MG
     Dates: start: 2023
  5. ELIQUIS [Concomitant]
     Active Substance: APIXABAN
     Dosage: 5 MG
     Dates: start: 2023
  6. LATANOPROST [Concomitant]
     Active Substance: LATANOPROST
     Dosage: 0.005 %
     Dates: start: 2020

REACTIONS (6)
  - Cardiac operation [Not Recovered/Not Resolved]
  - Visual impairment [Not Recovered/Not Resolved]
  - Glaucoma [Not Recovered/Not Resolved]
  - Pulmonary oedema [Unknown]
  - Dyspnoea [Unknown]
  - Hypertension [Recovered/Resolved]

NARRATIVE: CASE EVENT DATE: 20230201
